FAERS Safety Report 7611584-4 (Version None)
Quarter: 2011Q3

REPORT INFORMATION
  Report Type: 
  Country: None (occurrence: None)
  Receive Date: 20110715
  Receipt Date: 20081229
  Transmission Date: 20111222
  Serious: Yes (Hospitalization)
  Sender: FDA-Public Use
  Company Number: TR-GLAXOSMITHKLINE-B0552025A

PATIENT
  Age: 24 Year
  Sex: Female

DRUGS (5)
  1. BIPERIDEN [Concomitant]
     Route: 065
  2. VALPROIC ACID [Suspect]
     Dosage: 1000MG PER DAY
     Route: 065
  3. LITHIUM CARBONATE [Concomitant]
     Dosage: 900MG PER DAY
     Route: 065
  4. LAMOTRIGINE [Suspect]
     Indication: MAJOR DEPRESSION
     Route: 065
  5. RISPERIDONE [Concomitant]
     Dosage: 6MG PER DAY

REACTIONS (21)
  - AGITATION [None]
  - JUDGEMENT IMPAIRED [None]
  - PAPULE [None]
  - PURPURA [None]
  - ORAL DISORDER [None]
  - PSYCHOMOTOR HYPERACTIVITY [None]
  - PYURIA [None]
  - BLISTER [None]
  - SUICIDAL IDEATION [None]
  - DEPRESSED MOOD [None]
  - LIP SWELLING [None]
  - RASH GENERALISED [None]
  - HALLUCINATION, AUDITORY [None]
  - RED BLOOD CELL SEDIMENTATION RATE INCREASED [None]
  - SKIN LESION [None]
  - STEVENS-JOHNSON SYNDROME [None]
  - EYELID OEDEMA [None]
  - DERMATITIS BULLOUS [None]
  - CONJUNCTIVAL OEDEMA [None]
  - DELUSION [None]
  - LACK OF SPONTANEOUS SPEECH [None]
